FAERS Safety Report 8221488-4 (Version None)
Quarter: 2012Q1

REPORT INFORMATION
  Report Type: 
  Country: None (occurrence: None)
  Receive Date: 20120320
  Receipt Date: 20120309
  Transmission Date: 20120608
  Serious: Yes (Hospitalization, Other)
  Sender: FDA-Public Use
  Company Number: JP-FRI-1000028436

PATIENT
  Age: 83 Year
  Sex: Male

DRUGS (10)
  1. ERYTHROMYCIN [Concomitant]
  2. THEOLONG [Concomitant]
  3. PANTETHINE [Concomitant]
  4. MEMANTINE [Suspect]
     Dosage: 10 MG
     Route: 048
  5. MAGMITT [Concomitant]
  6. MEMANTINE [Suspect]
     Dosage: 15 MG
     Route: 048
  7. MEMANTINE [Suspect]
     Indication: DEMENTIA ALZHEIMER'S TYPE
     Dosage: 5 MG
     Route: 048
     Dates: start: 20111201
  8. MEMANTINE [Suspect]
     Dosage: 20 MG
     Route: 048
     Dates: end: 20120206
  9. LANSOPRAZOLE [Concomitant]
  10. FLIVAS [Concomitant]

REACTIONS (2)
  - BLOOD CREATININE INCREASED [None]
  - HYPOGLYCAEMIA [None]
